FAERS Safety Report 21173626 (Version 1)
Quarter: 2022Q3

REPORT INFORMATION
  Report Type: Spontaneous
  Country: US (occurrence: US)
  Receive Date: 20220804
  Receipt Date: 20220804
  Transmission Date: 20221027
  Serious: No
  Sender: FDA-Public Use
  Company Number: US-PERRIGO-21US010392

PATIENT
  Age: 8 Year
  Sex: Male
  Weight: 22.676 kg

DRUGS (4)
  1. LORATADINE [Suspect]
     Active Substance: LORATADINE
     Indication: Seasonal allergy
     Dosage: 10 MG, QD
     Route: 048
     Dates: start: 2020
  2. LORATADINE [Suspect]
     Active Substance: LORATADINE
     Dosage: 1 ADDITIONAL TABLET, SINGLE
     Route: 048
     Dates: start: 20210727, end: 20210727
  3. ALBUTEROL [Concomitant]
     Active Substance: ALBUTEROL
     Indication: Cough
     Dosage: UNKNOWN, PRN
     Route: 065
     Dates: start: 202106
  4. FLOVENT [Concomitant]
     Active Substance: FLUTICASONE PROPIONATE
     Indication: Cough
     Dosage: 2 PUFFS, BID
     Route: 055
     Dates: start: 202107

REACTIONS (1)
  - Incorrect dose administered [Recovered/Resolved]

NARRATIVE: CASE EVENT DATE: 20210727
